FAERS Safety Report 19087675 (Version 20)
Quarter: 2025Q4

REPORT INFORMATION
  Report Type: Report from Study
  Country: US (occurrence: US)
  Receive Date: 20210402
  Receipt Date: 20251130
  Transmission Date: 20260117
  Serious: Yes (Hospitalization, Other)
  Sender: TAKEDA
  Company Number: US-TAKEDA-2021TUS019116

PATIENT
  Sex: Female
  Weight: 135 kg

DRUGS (42)
  1. HUMAN IMMUNOGLOBULIN G [Suspect]
     Active Substance: HUMAN IMMUNOGLOBULIN G
     Indication: Immunodeficiency common variable
     Dosage: 16 GRAM, 1/WEEK
  2. HUMAN IMMUNOGLOBULIN G [Suspect]
     Active Substance: HUMAN IMMUNOGLOBULIN G
     Indication: Immunodeficiency
  3. DIPHENHYDRAMINE [Concomitant]
     Active Substance: DIPHENHYDRAMINE
     Dosage: UNK
  4. LEVOTHYROXINE SODIUM [Concomitant]
     Active Substance: LEVOTHYROXINE SODIUM
     Dosage: UNK
  5. METOPROLOL SUCCINATE [Concomitant]
     Active Substance: METOPROLOL SUCCINATE
     Dosage: UNK
  6. EPINEPHRINE [Concomitant]
     Active Substance: EPINEPHRINE
     Dosage: UNK
  7. FLUTICASONE PROPIONATE [Concomitant]
     Active Substance: FLUTICASONE PROPIONATE
     Dosage: UNK
  8. FARXIGA [Concomitant]
     Active Substance: DAPAGLIFLOZIN PROPANEDIOL
     Dosage: UNK
  9. TRULICITY [Concomitant]
     Active Substance: DULAGLUTIDE
     Dosage: UNK
  10. WIXELA INHUB [Concomitant]
     Active Substance: FLUTICASONE PROPIONATE\SALMETEROL XINAFOATE
     Dosage: UNK
  11. HUMALOG [Concomitant]
     Active Substance: INSULIN LISPRO
     Dosage: UNK
  12. ZYRTEC [Concomitant]
     Active Substance: CETIRIZINE HYDROCHLORIDE
     Dosage: UNK
  13. SPIRONOLACTONE [Concomitant]
     Active Substance: SPIRONOLACTONE
     Dosage: UNK
  14. ACETAMINOPHEN [Concomitant]
     Active Substance: ACETAMINOPHEN
     Dosage: UNK
  15. ATORVASTATIN CALCIUM [Concomitant]
     Active Substance: ATORVASTATIN CALCIUM
     Dosage: UNK
  16. TOUJEO [Concomitant]
     Active Substance: INSULIN GLARGINE
     Dosage: UNK
  17. GABAPENTIN [Concomitant]
     Active Substance: GABAPENTIN
     Dosage: UNK
  18. AZELASTINE HYDROCHLORIDE\FLUTICASONE PROPIONATE [Concomitant]
     Active Substance: AZELASTINE HYDROCHLORIDE\FLUTICASONE PROPIONATE
     Dosage: UNK
  19. ACIDOPHILUS [Concomitant]
     Active Substance: LACTOBACILLUS ACIDOPHILUS
     Dosage: UNK
  20. MELATONIN [Concomitant]
     Active Substance: MELATONIN
     Dosage: UNK
  21. BUMETANIDE [Concomitant]
     Active Substance: BUMETANIDE
     Dosage: UNK
  22. XARELTO [Concomitant]
     Active Substance: RIVAROXABAN
     Dosage: UNK
  23. FISH OIL [Concomitant]
     Active Substance: FISH OIL
     Indication: Product used for unknown indication
     Dosage: UNK
  24. MAGNESIUM [Concomitant]
     Active Substance: MAGNESIUM
     Dosage: UNK
  25. ISOSORBIDE MONONITRATE [Concomitant]
     Active Substance: ISOSORBIDE MONONITRATE
     Dosage: UNK
  26. Lmx [Concomitant]
     Dosage: UNK
  27. FLUTICASONE [Concomitant]
     Active Substance: FLUTICASONE
     Dosage: UNK
  28. METOPROLOL [Concomitant]
     Active Substance: METOPROLOL
     Dosage: UNK
  29. DOCUSATE [Concomitant]
     Active Substance: DOCUSATE
     Dosage: UNK
  30. ATORVASTATIN [Concomitant]
     Active Substance: ATORVASTATIN
     Dosage: UNK
  31. ISOSORBIDE [Concomitant]
     Active Substance: ISOSORBIDE
     Dosage: UNK
  32. TIROSINT [Concomitant]
     Active Substance: LEVOTHYROXINE SODIUM
     Dosage: UNK
  33. INSULIN NOS [Concomitant]
     Active Substance: INSULIN NOS
     Dosage: UNK
  34. LIDOCAINE [Concomitant]
     Active Substance: LIDOCAINE
     Dosage: UNK
  35. CRANBERRY [Concomitant]
     Active Substance: CRANBERRY
     Dosage: UNK
  36. ASPIRIN [Concomitant]
     Active Substance: ASPIRIN
     Dosage: UNK
  37. ZINC [Concomitant]
     Active Substance: ZINC
     Dosage: UNK
  38. LACTOBACILLUS ACIDOPHILUS [Concomitant]
     Active Substance: LACTOBACILLUS ACIDOPHILUS
     Dosage: UNK
  39. STOOL SOFTENER (DOCUSATE) [Concomitant]
     Active Substance: DOCUSATE
     Dosage: UNK
  40. OZEMPIC [Concomitant]
     Active Substance: SEMAGLUTIDE
     Dosage: UNK
  41. VITAMIN D3 [Concomitant]
     Active Substance: CHOLECALCIFEROL
     Dosage: UNK
  42. DIPHENHYDRAMINE HYDROCHLORIDE [Concomitant]
     Active Substance: DIPHENHYDRAMINE HYDROCHLORIDE
     Dosage: UNK

REACTIONS (17)
  - Cellulitis [Unknown]
  - Positron emission tomogram abnormal [Unknown]
  - Nephrolithiasis [Unknown]
  - Squamous cell carcinoma [Unknown]
  - Pneumonia [Unknown]
  - Product dose omission issue [Unknown]
  - Urinary tract infection [Unknown]
  - Seasonal allergy [Unknown]
  - Nasopharyngitis [Unknown]
  - Inappropriate schedule of product administration [Unknown]
  - Infusion site haemorrhage [Unknown]
  - Sinusitis [Unknown]
  - Contusion [Unknown]
  - Cough [Unknown]
  - Malaise [Unknown]
  - Product use issue [Unknown]
  - Insurance issue [Unknown]
